FAERS Safety Report 7667923-1 (Version None)
Quarter: 2011Q3

REPORT INFORMATION
  Report Type: 
  Country: None (occurrence: None)
  Receive Date: 20110808
  Receipt Date: 20110729
  Transmission Date: 20111222
  Serious: Yes (Hospitalization)
  Sender: FDA-Public Use
  Company Number: US-BIOGENIDEC-2011BI026275

PATIENT
  Age: 56 Year
  Sex: Male

DRUGS (3)
  1. TYSABRI [Suspect]
     Indication: MULTIPLE SCLEROSIS
     Route: 042
     Dates: start: 20050211
  2. TYSABRI [Suspect]
     Route: 042
     Dates: start: 20090427, end: 20110323
  3. TYSABRI [Suspect]
     Route: 042
     Dates: start: 20061127, end: 20080806

REACTIONS (1)
  - GAIT DISTURBANCE [None]
